FAERS Safety Report 18671637 (Version 1)
Quarter: 2020Q4

REPORT INFORMATION
  Report Type: Spontaneous
  Country: IT (occurrence: IT)
  Receive Date: 20201228
  Receipt Date: 20201228
  Transmission Date: 20210114
  Serious: Yes (Other)
  Sender: FDA-Public Use
  Company Number: NVSC2020IT341990

PATIENT

DRUGS (1)
  1. MYCOPHENOLATE MOFETIL. [Suspect]
     Active Substance: MYCOPHENOLATE MOFETIL
     Indication: CENTRAL NERVOUS SYSTEM VASCULITIS
     Dosage: 1100 MG/M2, QD (650-1100 MG/M2/DAY)
     Route: 065

REACTIONS (3)
  - Central nervous system vasculitis [Unknown]
  - Condition aggravated [Unknown]
  - Product use in unapproved indication [Unknown]
